FAERS Safety Report 17698908 (Version 1)
Quarter: 2020Q2

REPORT INFORMATION
  Report Type: Report from Study
  Country: US (occurrence: US)
  Receive Date: 20200423
  Receipt Date: 20200423
  Transmission Date: 20200714
  Serious: Yes (Hospitalization)
  Sender: FDA-Public Use
  Company Number: US-EISAI MEDICAL RESEARCH-EC-2020-069701

PATIENT
  Age: 59 Year
  Sex: Female

DRUGS (3)
  1. OXYCODONE/OXYCONTIN [Concomitant]
  2. LENVIMA [Suspect]
     Active Substance: LENVATINIB
     Indication: ENDOMETRIAL CANCER
     Route: 048
     Dates: start: 20200123, end: 2020
  3. LEVOTHYROXINE. [Concomitant]
     Active Substance: LEVOTHYROXINE

REACTIONS (16)
  - Blood urine present [Unknown]
  - Tongue discomfort [Unknown]
  - Headache [Unknown]
  - Stomatitis [Not Recovered/Not Resolved]
  - Protein urine present [Not Recovered/Not Resolved]
  - Pulmonary embolism [Unknown]
  - Fatigue [Unknown]
  - Abdominal pain upper [Unknown]
  - Glossodynia [Recovering/Resolving]
  - Epistaxis [Unknown]
  - Decreased appetite [Unknown]
  - Dysphonia [Unknown]
  - Vitreous floaters [Unknown]
  - Speech disorder [Unknown]
  - Blood pressure fluctuation [Unknown]
  - Defaecation urgency [Unknown]

NARRATIVE: CASE EVENT DATE: 2020
